FAERS Safety Report 12272470 (Version 3)
Quarter: 2016Q3

REPORT INFORMATION
  Report Type: Spontaneous
  Country: US (occurrence: US)
  Receive Date: 20160415
  Receipt Date: 20160729
  Transmission Date: 20161109
  Serious: Yes (Other)
  Sender: FDA-Public Use
  Company Number: US-BAYER-2016-071869

PATIENT
  Age: 36 Year
  Sex: Female

DRUGS (1)
  1. MIRENA [Suspect]
     Active Substance: LEVONORGESTREL
     Indication: CONTRACEPTION
     Dosage: 20 MCG/24HR, CONT
     Route: 015
     Dates: start: 20150917, end: 20160222

REACTIONS (14)
  - Pruritus generalised [None]
  - Genital haemorrhage [Recovered/Resolved]
  - Histamine level increased [None]
  - Presyncope [None]
  - Hypoaesthesia [None]
  - Vomiting [None]
  - Speech disorder [None]
  - Migraine [Recovered/Resolved]
  - Exposure during breast feeding [Recovered/Resolved]
  - Skin discolouration [None]
  - Lyme disease [None]
  - Motor dysfunction [None]
  - Nausea [None]
  - Headache [None]

NARRATIVE: CASE EVENT DATE: 201509
